FAERS Safety Report 6496343-0 (Version None)
Quarter: 2009Q4

REPORT INFORMATION
  Report Type: 
  Country: None (occurrence: None)
  Receive Date: 20091214
  Receipt Date: 20091130
  Transmission Date: 20100525
  Serious: Yes (Death)
  Sender: FDA-Public Use
  Company Number: GR-MYLANLABS-2009S1020566

PATIENT
  Age: 44 Year
  Sex: Male

DRUGS (11)
  1. COTRIMOXAZOLE [Suspect]
     Indication: PNEUMOCYSTIS JIROVECI PNEUMONIA
     Dosage: (TRIMETHOPRIM 20 MG/KG AND SULFAMETHOXAZOLE 100MG/KG) DAILY
     Route: 042
  2. ANTILYMPHOCYTE GLOBULIN [Suspect]
     Indication: IMMUNOSUPPRESSION
     Dosage: 1.5 MG/KG/DAY
  3. CYCLOSPORINE [Suspect]
     Indication: IMMUNOSUPPRESSION
     Dosage: 8 MG/KG/DAY
  4. PREDNISOLONE [Suspect]
     Indication: IMMUNOSUPPRESSION
     Dosage: 15 MG/DAY
  5. MYCOPHENOLATE MOFETIL [Suspect]
     Indication: IMMUNOSUPPRESSION
     Dosage: 2 G/DAY
  6. PENTAMIDINE ISETHIONATE [Suspect]
     Indication: PNEUMOCYSTIS JIROVECI PNEUMONIA
     Dosage: 4 MG/KG/DAY
     Route: 042
  7. HYDROCORTISONE [Concomitant]
     Dosage: 125MG THREE TIMES DAILY
  8. CEFTRIAXONE [Concomitant]
     Indication: INFECTION PROPHYLAXIS
  9. ERYTHROMYCIN [Concomitant]
     Indication: INFECTION PROPHYLAXIS
  10. GANCICLOVIR [Concomitant]
     Indication: INFECTION PROPHYLAXIS
  11. DAPSONE [Concomitant]
     Indication: PNEUMOCYSTIS JIROVECI PNEUMONIA
     Dosage: 100 MG/DAY

REACTIONS (3)
  - PNEUMOCYSTIS JIROVECI PNEUMONIA [None]
  - TORSADE DE POINTES [None]
  - TREATMENT FAILURE [None]
